FAERS Safety Report 10746936 (Version 1)
Quarter: 2015Q1

REPORT INFORMATION
  Report Type: Spontaneous
  Country: US (occurrence: US)
  Receive Date: 20150129
  Receipt Date: 20150129
  Transmission Date: 20150721
  Serious: No
  Sender: FDA-Public Use
  Company Number: US-ASTRAZENECA-2015SE06900

PATIENT
  Age: 863 Month
  Sex: Female
  Weight: 63.5 kg

DRUGS (5)
  1. PULMICORT FLEXHALER [Suspect]
     Active Substance: BUDESONIDE
     Indication: WHEEZING
     Route: 055
     Dates: start: 201501
  2. LEVOTHYROXINE [Concomitant]
     Active Substance: LEVOTHYROXINE
  3. METOPROLOL TARTRATE. [Concomitant]
     Active Substance: METOPROLOL TARTRATE
  4. SIMVASTATIN. [Concomitant]
     Active Substance: SIMVASTATIN
  5. PULMICORT FLEXHALER [Suspect]
     Active Substance: BUDESONIDE
     Indication: BRONCHOSPASM
     Route: 055
     Dates: start: 201501

REACTIONS (4)
  - Product use issue [Not Recovered/Not Resolved]
  - Oral discomfort [Recovered/Resolved]
  - Circumstance or information capable of leading to medication error [Unknown]
  - Device use error [Unknown]

NARRATIVE: CASE EVENT DATE: 2015
